FAERS Safety Report 7855082-1 (Version None)
Quarter: 2011Q4

REPORT INFORMATION
  Report Type: 
  Country: None (occurrence: None)
  Receive Date: 20111026
  Receipt Date: 20111021
  Transmission Date: 20120403
  Serious: Yes (Hospitalization, Congenital Anomaly)
  Sender: FDA-Public Use
  Company Number: US-ROCHE-1006739

PATIENT

DRUGS (1)
  1. OMALIZUMAB [Suspect]
     Indication: ASTHMA
     Route: 064
     Dates: start: 20110113

REACTIONS (2)
  - MATERNAL EXPOSURE DURING PREGNANCY [None]
  - LARYNGOMALACIA [None]
